FAERS Safety Report 6058897-8 (Version None)
Quarter: 2009Q1

REPORT INFORMATION
  Report Type: 
  Country: None (occurrence: None)
  Receive Date: 20090128
  Receipt Date: 20090128
  Transmission Date: 20090719
  Serious: Yes (Other)
  Sender: FDA-Public Use
  Company Number: None

PATIENT
  Age: 4 Year
  Sex: Male
  Weight: 18.1439 kg

DRUGS (2)
  1. SINGULAIR [Suspect]
     Indication: ASTHMA
     Dosage: CHEW AND SWALLOW 1 TABLET DAILY PO
     Route: 048
     Dates: start: 20080830, end: 20081220
  2. SINGULAIR [Suspect]
     Indication: MULTIPLE ALLERGIES
     Dosage: CHEW AND SWALLOW 1 TABLET DAILY PO
     Route: 048
     Dates: start: 20080830, end: 20081220

REACTIONS (6)
  - AGGRESSION [None]
  - CRYING [None]
  - DEPRESSED MOOD [None]
  - INSOMNIA [None]
  - MALAISE [None]
  - SCREAMING [None]
